FAERS Safety Report 21867183 (Version 5)
Quarter: 2023Q1

REPORT INFORMATION
  Report Type: Report from Study
  Country: NL (occurrence: NL)
  Receive Date: 20230116
  Receipt Date: 20230128
  Transmission Date: 20230417
  Serious: Yes (Hospitalization, Other)
  Sender: FDA-Public Use
  Company Number: NL-ABBVIE-4270362

PATIENT
  Sex: Male

DRUGS (10)
  1. CARBIDOPA\LEVODOPA [Suspect]
     Active Substance: CARBIDOPA\LEVODOPA
     Indication: Parkinson^s disease
     Dosage: MD: 13.5ML; CD: 3.1M;L/H; ED: 2.0ML, DURATION TEXT: REMAINS AT 16 HOURS
     Route: 050
  2. CARBIDOPA\LEVODOPA [Suspect]
     Active Substance: CARBIDOPA\LEVODOPA
     Route: 050
     Dates: start: 20221219
  3. CARBIDOPA\LEVODOPA [Suspect]
     Active Substance: CARBIDOPA\LEVODOPA
     Dosage: MD: 15ML; CD: 4.0M;L/H; ED: 4.0ML, DURATION TEXT: REMAINS AT 16 HOURS
     Route: 050
  4. CARBIDOPA\LEVODOPA [Suspect]
     Active Substance: CARBIDOPA\LEVODOPA
     Dosage: MD: 12.0ML; CD: 4.0ML/H; ED: 4.0ML; REMAINS AT 16 HOURS
     Route: 050
  5. Sinemet 125 MG [Concomitant]
     Indication: Parkinson^s disease
     Dosage: TIME INTERVAL: 0.16666667 DAYS
     Dates: end: 20221220
  6. Madopar 125 MG [Concomitant]
     Indication: Parkinson^s disease
     Dosage: MADOPAR DISPER
     Dates: start: 20221222
  7. Neupro 8MG [Concomitant]
     Indication: Parkinson^s disease
  8. BENSERAZIDE HYDROCHLORIDE\LEVODOPA [Concomitant]
     Active Substance: BENSERAZIDE HYDROCHLORIDE\LEVODOPA
     Indication: Parkinson^s disease
     Dosage: HBS
  9. ENTACAPONE [Concomitant]
     Active Substance: ENTACAPONE
     Indication: Parkinson^s disease
     Dosage: TIME INTERVAL: 0.16666667 DAYS
  10. Neupro 8 Milligram [Concomitant]
     Indication: Parkinson^s disease

REACTIONS (18)
  - Hospitalisation [Not Recovered/Not Resolved]
  - Nocturia [Not Recovered/Not Resolved]
  - Liver abscess [Not Recovered/Not Resolved]
  - Decreased appetite [Not Recovered/Not Resolved]
  - Unevaluable event [Not Recovered/Not Resolved]
  - Middle insomnia [Not Recovered/Not Resolved]
  - Illness [Unknown]
  - Bacterial infection [Not Recovered/Not Resolved]
  - Abdominal pain upper [Not Recovered/Not Resolved]
  - Confusional state [Not Recovered/Not Resolved]
  - Stoma site inflammation [Not Recovered/Not Resolved]
  - Mechanical ventilation [Not Recovered/Not Resolved]
  - General physical health deterioration [Not Recovered/Not Resolved]
  - Oedema [Not Recovered/Not Resolved]
  - Pneumonia aspiration [Not Recovered/Not Resolved]
  - Septic shock [Not Recovered/Not Resolved]
  - Ileus [Not Recovered/Not Resolved]
  - Intensive care [Not Recovered/Not Resolved]

NARRATIVE: CASE EVENT DATE: 20230101
